FAERS Safety Report 8716035 (Version 2)
Quarter: 2012Q4

REPORT INFORMATION
  Report Type: 
  Country: US (occurrence: US)
  Receive Date: 20120809
  Receipt Date: 20121018
  Transmission Date: 20130627
  Serious: Yes (Death, Hospitalization)
  Sender: FDA-Public Use
  Company Number: US-ROCHE-1099208

PATIENT
  Age: 70 Year

DRUGS (4)
  1. RITUXAN [Suspect]
     Indication: LYMPHOMA
     Route: 065
     Dates: start: 20120514
  2. RITUXAN [Suspect]
     Dosage: SPLITTED DOSE.
     Route: 065
     Dates: start: 20120515
  3. BENDAMUSTINE [Suspect]
     Indication: LYMPHOMA
     Route: 042
     Dates: start: 20120514
  4. BENDAMUSTINE [Suspect]
     Route: 042
     Dates: start: 20120515, end: 20120515

REACTIONS (5)
  - Histiocytosis haematophagic [Fatal]
  - Pancytopenia [Fatal]
  - Bacteraemia [Fatal]
  - Aspergillosis [Fatal]
  - Chills [Unknown]
